FAERS Safety Report 6827520-4 (Version None)
Quarter: 2010Q3

REPORT INFORMATION
  Report Type: 
  Country: None (occurrence: None)
  Receive Date: 20100709
  Receipt Date: 20070323
  Transmission Date: 20110219
  Serious: No
  Sender: FDA-Public Use
  Company Number: US-PFIZER INC-2007005451

PATIENT
  Sex: Male
  Weight: 82.1 kg

DRUGS (5)
  1. CHANTIX [Suspect]
     Indication: SMOKING CESSATION THERAPY
     Route: 048
     Dates: start: 20070109
  2. HYDROCHLOROTHIAZIDE [Concomitant]
     Indication: HYPERTENSION
     Route: 048
  3. LISINOPRIL [Concomitant]
     Indication: HYPERTENSION
     Route: 048
  4. LIPITOR [Concomitant]
     Indication: BLOOD CHOLESTEROL INCREASED
     Route: 048
  5. EFFEXOR XR [Concomitant]
     Indication: DEPRESSION
     Route: 048

REACTIONS (2)
  - FATIGUE [None]
  - LISTLESS [None]
